FAERS Safety Report 16189130 (Version 2)
Quarter: 2020Q2

REPORT INFORMATION
  Report Type: Report from Study
  Country: US (occurrence: US)
  Receive Date: 20190412
  Receipt Date: 20200416
  Transmission Date: 20200713
  Serious: Yes (Death)
  Sender: FDA-Public Use
  Company Number: US-ROCHE-2300964

PATIENT
  Sex: Female

DRUGS (1)
  1. ZELBORAF [Suspect]
     Active Substance: VEMURAFENIB
     Indication: BREAST CANCER FEMALE
     Dosage: TAKE WHOLE WITH WATER
     Route: 048

REACTIONS (1)
  - Death [Fatal]
